FAERS Safety Report 5769427-X (Version None)
Quarter: 2008Q2

REPORT INFORMATION
  Report Type: 
  Country: None (occurrence: None)
  Receive Date: 20080612
  Receipt Date: 20080327
  Transmission Date: 20081010
  Serious: No
  Sender: FDA-Public Use
  Company Number: US-ABBOTT-08P-163-0444313-00

PATIENT
  Sex: Female
  Weight: 98.518 kg

DRUGS (2)
  1. HUMIRA [Suspect]
     Indication: CROHN'S DISEASE
     Route: 058
     Dates: start: 20071215
  2. STEROIDS [Concomitant]
     Indication: DRUG USE FOR UNKNOWN INDICATION

REACTIONS (4)
  - ACCIDENT [None]
  - DIPLOPIA [None]
  - DYSKINESIA [None]
  - MUSCULAR WEAKNESS [None]
